FAERS Safety Report 26201821 (Version 1)
Quarter: 2025Q4

REPORT INFORMATION
  Report Type: Spontaneous
  Country: US (occurrence: US)
  Receive Date: 20251226
  Receipt Date: 20251226
  Transmission Date: 20260118
  Serious: No
  Sender: ROCHE
  Company Number: US-ROCHE-10000459982

PATIENT
  Age: 78 Year
  Sex: Male

DRUGS (6)
  1. VABYSMO [Suspect]
     Active Substance: FARICIMAB-SVOA
     Indication: Neovascular age-related macular degeneration
  2. VABYSMO [Suspect]
     Active Substance: FARICIMAB-SVOA
  3. VABYSMO [Suspect]
     Active Substance: FARICIMAB-SVOA
  4. VABYSMO [Suspect]
     Active Substance: FARICIMAB-SVOA
  5. VABYSMO [Suspect]
     Active Substance: FARICIMAB-SVOA
  6. VABYSMO [Suspect]
     Active Substance: FARICIMAB-SVOA

REACTIONS (9)
  - Eye inflammation [Unknown]
  - Pain [Unknown]
  - Vitreous floaters [Unknown]
  - Headache [Unknown]
  - Visual impairment [Unknown]
  - Optical coherence tomography abnormal [Unknown]
  - Haemorrhage [Unknown]
  - Vision blurred [Unknown]
  - Iritis [Unknown]
